FAERS Safety Report 5962625-1 (Version None)
Quarter: 2008Q4

REPORT INFORMATION
  Report Type: 
  Country: None (occurrence: None)
  Receive Date: 20081121
  Receipt Date: 20081114
  Transmission Date: 20090506
  Serious: Yes (Hospitalization)
  Sender: FDA-Public Use
  Company Number: CO-PFIZER INC-2008097818

PATIENT
  Sex: Female

DRUGS (2)
  1. CHAMPIX [Suspect]
     Indication: SMOKING CESSATION THERAPY
     Route: 048
     Dates: start: 20080929
  2. CONTRACEPTIVE, UNSPECIFIED [Concomitant]

REACTIONS (3)
  - MOBILITY DECREASED [None]
  - MUSCLE DISORDER [None]
  - MUSCLE SPASMS [None]
